FAERS Safety Report 22018418 (Version 1)
Quarter: 2023Q1

REPORT INFORMATION
  Report Type: Spontaneous
  Country: CN (occurrence: CN)
  Receive Date: 20230221
  Receipt Date: 20230221
  Transmission Date: 20230417
  Serious: Yes (Other)
  Sender: FDA-Public Use
  Company Number: None

PATIENT
  Age: 8 Year
  Sex: Female
  Weight: 23 kg

DRUGS (4)
  1. CYCLOPHOSPHAMIDE [Suspect]
     Active Substance: CYCLOPHOSPHAMIDE
     Indication: Acute lymphocytic leukaemia
     Dosage: 0.9 G, ONCE, DILUTED WITH 250 ML OF 4:1 GLUCOSE SODIUM CHLORIDE
     Route: 041
     Dates: start: 20221219, end: 20221219
  2. DEXTROSE\SODIUM CHLORIDE [Suspect]
     Active Substance: DEXTROSE\SODIUM CHLORIDE
     Indication: Medication dilution
     Dosage: 4:1, 250 ML, ONCE, USED TO DILUTE 0.9 G CYCLOPHOSPHAMIDE, DOSAGE FORM: INJECTION
     Route: 041
     Dates: start: 20221219, end: 20221219
  3. DEXTROSE\SODIUM CHLORIDE [Suspect]
     Active Substance: DEXTROSE\SODIUM CHLORIDE
     Dosage: 4:1, 250 ML, Q12H, USED TO DILUTE 0.9 G CYTARABINE, DOSAGE FORM: INJECTION
     Route: 041
     Dates: start: 20221219, end: 20221222
  4. CYTARABINE HYDROCHLORIDE [Suspect]
     Active Substance: CYTARABINE HYDROCHLORIDE
     Indication: Acute lymphocytic leukaemia
     Dosage: 0.9 G, Q12H, DILUTED WITH 250 ML OF 4:1 GLUCOSE SODIUM CHLORIDE
     Route: 041
     Dates: start: 20221219, end: 20221222

REACTIONS (2)
  - Myelosuppression [Recovering/Resolving]
  - Platelet count decreased [Recovering/Resolving]

NARRATIVE: CASE EVENT DATE: 20221228
